FAERS Safety Report 6369866-2 (Version None)
Quarter: 2009Q3

REPORT INFORMATION
  Report Type: 
  Country: None (occurrence: None)
  Receive Date: 20090923
  Receipt Date: 20070515
  Transmission Date: 20100115
  Serious: No
  Sender: FDA-Public Use
  Company Number: US-ASTRAZENECA-2006UW10919

PATIENT
  Age: 17548 Day
  Sex: Male
  Weight: 90.9 kg

DRUGS (27)
  1. SEROQUEL [Suspect]
     Indication: ANXIETY
     Route: 048
     Dates: start: 20050226, end: 20061218
  2. SEROQUEL [Suspect]
     Indication: DEPRESSION
     Route: 048
     Dates: start: 20050226, end: 20061218
  3. SEROQUEL [Suspect]
     Indication: INSOMNIA
     Route: 048
     Dates: start: 20050226, end: 20061218
  4. SEROQUEL [Suspect]
     Dosage: 25-200 MG
     Route: 048
     Dates: start: 20030114
  5. SEROQUEL [Suspect]
     Dosage: 25-200 MG
     Route: 048
     Dates: start: 20030114
  6. SEROQUEL [Suspect]
     Dosage: 25-200 MG
     Route: 048
     Dates: start: 20030114
  7. ZYPREXA [Suspect]
     Dates: start: 20030401
  8. ABILIFY [Concomitant]
     Dosage: 2 DAILY
     Dates: start: 20040401
  9. ALPRAZOLAM [Concomitant]
  10. HYDROXYZINE PAMOATE [Concomitant]
  11. FENTANYL TRANSDERMAL SYSTEM [Concomitant]
  12. IBUPROFEN [Concomitant]
  13. LOTRISONE [Concomitant]
  14. HYDROCODONE [Concomitant]
  15. ERYTHROMYCIN [Concomitant]
  16. PAXIL [Concomitant]
  17. ZYRTEC [Concomitant]
  18. LORATADINE [Concomitant]
  19. METFORMIN HCL [Concomitant]
  20. PAROXETINE HCL [Concomitant]
  21. NABUMETONE [Concomitant]
  22. LOTENSIN [Concomitant]
  23. TRAZODONE [Concomitant]
  24. AMOXICILLIN [Concomitant]
  25. NASONEX [Concomitant]
  26. ZOVIRAX [Concomitant]
  27. ATIVAN [Concomitant]

REACTIONS (21)
  - AGGRESSION [None]
  - AORTIC VALVE INCOMPETENCE [None]
  - CHEST PAIN [None]
  - DECREASED APPETITE [None]
  - DERMATITIS [None]
  - DIABETES MELLITUS [None]
  - DIARRHOEA [None]
  - DYSURIA [None]
  - ERECTILE DYSFUNCTION [None]
  - FATIGUE [None]
  - FOLLICULITIS [None]
  - INSOMNIA [None]
  - NECK PAIN [None]
  - OROPHARYNGEAL PAIN [None]
  - PAIN IN EXTREMITY [None]
  - PHARYNGITIS [None]
  - RASH [None]
  - RHINITIS ALLERGIC [None]
  - SOMNOLENCE [None]
  - VISUAL IMPAIRMENT [None]
  - WEIGHT GAIN POOR [None]
